FAERS Safety Report 5780674-3 (Version None)
Quarter: 2008Q2

REPORT INFORMATION
  Report Type: 
  Country: None (occurrence: None)
  Receive Date: 20080620
  Receipt Date: 20080606
  Transmission Date: 20081010
  Serious: No
  Sender: FDA-Public Use
  Company Number: US-BOEHRINGER INGELHEIM GMBH, GERMANY-2008-BP-08885BP

PATIENT
  Age: 57 Year
  Sex: Female

DRUGS (6)
  1. ZANTAC 150 [Suspect]
     Indication: GASTROOESOPHAGEAL REFLUX DISEASE
     Route: 048
     Dates: start: 20080508, end: 20080605
  2. ZANTAC 150 [Suspect]
  3. ZANTAC 150 [Suspect]
     Indication: DYSPEPSIA
  4. PRILOSEC [Concomitant]
  5. ZEGARID [Concomitant]
  6. ACIPHER [Concomitant]

REACTIONS (2)
  - DRUG INEFFECTIVE [None]
  - HEADACHE [None]
